FAERS Safety Report 10441141 (Version 1)
Quarter: 2014Q3

REPORT INFORMATION
  Report Type: Spontaneous
  Country: US (occurrence: None)
  Receive Date: 20140908
  Receipt Date: 20140908
  Transmission Date: 20150326
  Serious: No
  Sender: FDA-Public Use
  Company Number: None

PATIENT
  Age: 64 Year
  Sex: Male
  Weight: 106.6 kg

DRUGS (1)
  1. MELOXICAM. [Suspect]
     Active Substance: MELOXICAM
     Indication: ARTHRALGIA
     Dosage: LESS THAN 2 WKS DAILY 1 ONCE DAILY TAKEN BY MOUTH
     Route: 048

REACTIONS (3)
  - Hypopnoea [None]
  - Blindness transient [None]
  - Dizziness [None]

NARRATIVE: CASE EVENT DATE: 20140720
